FAERS Safety Report 18440273 (Version 4)
Quarter: 2020Q4

REPORT INFORMATION
  Report Type: Spontaneous
  Country: JP (occurrence: JP)
  Receive Date: 20201029
  Receipt Date: 20201111
  Transmission Date: 20210114
  Serious: Yes (Hospitalization)
  Sender: FDA-Public Use
  Company Number: JP-TAIHO ONCOLOGY  INC-JPTT200365

PATIENT
  Age: 74 Year
  Sex: Female
  Weight: 47.2 kg

DRUGS (12)
  1. OTHER ANTITUMOR AGENTS [Concomitant]
     Active Substance: UNSPECIFIED INGREDIENT
     Indication: COLON CANCER
     Dosage: DETAILS NOT REPORTED
     Route: 048
     Dates: start: 20200423, end: 20200524
  2. XYZAL [Concomitant]
     Active Substance: LEVOCETIRIZINE DIHYDROCHLORIDE
     Indication: SEASONAL ALLERGY
     Dosage: STARTED BEFORE INFORMED CONSENT WAS OBTAINED
     Route: 048
  3. DEXAMETHASONE. [Concomitant]
     Active Substance: DEXAMETHASONE
     Indication: STOMATITIS
     Dosage: APPROPRIATE DOSE
     Route: 049
     Dates: start: 20200601
  4. SODIUM GUALENATE HYDRATE [Concomitant]
     Active Substance: SODIUM GUALENATE MONOHYDRATE
     Indication: STOMATITIS
     Dosage: APPROPRIATE DOSE
     Route: 049
     Dates: start: 20200622
  5. LONSURF [Suspect]
     Active Substance: TIPIRACIL HYDROCHLORIDE\TRIFLURIDINE
     Indication: COLON CANCER
     Dosage: DETAILS NOT REPORTED
     Route: 048
     Dates: start: 20200907
  6. OTHER ANTITUMOR AGENTS [Concomitant]
     Active Substance: UNSPECIFIED INGREDIENT
     Dosage: DETAILS NOT REPORTED
     Route: 048
     Dates: start: 20200706, end: 20200906
  7. BEVACIZUMAB(GENETICAL RECOMBINATION) [Concomitant]
     Active Substance: BEVACIZUMAB
     Indication: COLON CANCER
     Dosage: DETAILS NOT REPORTED
     Route: 041
     Dates: start: 20200907
  8. CRAVIT [Concomitant]
     Active Substance: LEVOFLOXACIN
     Indication: SEASONAL ALLERGY
     Dosage: APPROPRIATE DOSE
     Route: 047
     Dates: start: 20200528
  9. LAMISIL [Concomitant]
     Active Substance: TERBINAFINE HYDROCHLORIDE
     Indication: DRY SKIN
     Dosage: APPROPRIATE DOSE
     Route: 061
     Dates: start: 20200928
  10. KEYTRUDA [Suspect]
     Active Substance: PEMBROLIZUMAB
     Indication: COLON CANCER
     Dosage: 6 CYCLES
     Route: 041
     Dates: start: 20200423, end: 20200817
  11. OTHER ANTITUMOR AGENTS [Concomitant]
     Active Substance: UNSPECIFIED INGREDIENT
     Dosage: DETAILS NOT REPORTED
     Route: 048
     Dates: start: 20200601, end: 20200621
  12. FLUOROMETHOLONE. [Concomitant]
     Active Substance: FLUOROMETHOLONE
     Indication: SEASONAL ALLERGY
     Dosage: APPROPRIATE DOSE
     Route: 047
     Dates: start: 20200528

REACTIONS (1)
  - Type 1 diabetes mellitus [Recovering/Resolving]

NARRATIVE: CASE EVENT DATE: 20201019
